FAERS Safety Report 7512154 (Version 5)
Quarter: 2017Q3

REPORT INFORMATION
  Report Type: Report from Study
  Country: PL (occurrence: PL)
  Receive Date: 20100730
  Receipt Date: 20170821
  Transmission Date: 20171128
  Serious: Yes (Life-Threatening, Hospitalization, Other)
  Sender: FDA-Public Use
  Company Number: PL-BRISTOL-MYERS SQUIBB COMPANY-15202096

PATIENT
  Age: 43 Year
  Sex: Male

DRUGS (16)
  1. ARIPIPRAZOLE. [Suspect]
     Active Substance: ARIPIPRAZOLE
     Indication: PRODUCT USED FOR UNKNOWN INDICATION
     Dosage: 20 MG, QD
     Route: 048
     Dates: start: 20100713, end: 20100714
  2. OLANZAPINE. [Concomitant]
     Active Substance: OLANZAPINE
     Indication: SCHIZOPHRENIA
     Dosage: 20 MG, QD
     Route: 065
     Dates: start: 20100610, end: 20100713
  3. MANNITOL. [Concomitant]
     Active Substance: MANNITOL
     Indication: COMA
     Dosage: 300 ML, QD
     Route: 042
     Dates: start: 20100714, end: 20100718
  4. KCL [Concomitant]
     Active Substance: POTASSIUM CHLORIDE
     Indication: COMA
     Dosage: 20 ML, QD
     Route: 042
     Dates: start: 20100716, end: 20100718
  5. ARIPIPRAZOLE. [Suspect]
     Active Substance: ARIPIPRAZOLE
     Indication: PRODUCT USED FOR UNKNOWN INDICATION
     Dosage: 10 MG, QD
     Route: 048
     Dates: start: 20100706, end: 20100713
  6. TRILAFON [Concomitant]
     Active Substance: PERPHENAZINE
     Indication: SCHIZOPHRENIA
     Dosage: 40 MG, QD
     Route: 065
  7. NACL [Concomitant]
     Active Substance: SODIUM CHLORIDE
     Indication: COMA
     Dosage: 2000 ML, QD
     Route: 042
     Dates: start: 20100714, end: 20100719
  8. RELANIUM [Concomitant]
     Active Substance: DIAZEPAM
     Indication: SCHIZOPHRENIA
     Dosage: UNK
     Route: 065
  9. ARIPIPRAZOLE. [Suspect]
     Active Substance: ARIPIPRAZOLE
     Indication: SCHIZOPHRENIA
     Dosage: 5 MG, QD
     Route: 048
     Dates: start: 20100629, end: 20100705
  10. DEXAVEN [Concomitant]
     Active Substance: DEXAMETHASONE
     Indication: COMA
     Dosage: 12 MG, QD
     Route: 042
     Dates: start: 20100714, end: 20100719
  11. LORAFEN [Concomitant]
     Active Substance: LORAZEPAM
     Indication: ANXIETY
     Dosage: 1 MG, UNK
     Route: 048
     Dates: start: 20100711, end: 20100712
  12. HALOPERIDOL. [Concomitant]
     Active Substance: HALOPERIDOL
     Indication: SCHIZOPHRENIA
     Dosage: 10 MG, QD
     Route: 030
     Dates: start: 20100713, end: 20100714
  13. TRILAFON ENANTAT [Concomitant]
     Indication: SCHIZOPHRENIA
     Dosage: UNK
     Route: 065
  14. ZOLAFREN [Concomitant]
     Indication: PRODUCT USED FOR UNKNOWN INDICATION
     Dosage: 20 MG, QD
     Route: 065
     Dates: start: 20100610, end: 20100713
  15. PROMAZINE [Concomitant]
     Active Substance: PROMAZINE
     Indication: SCHIZOPHRENIA
     Dosage: 400 MG, QD
     Route: 065
  16. GLUCOSE [Concomitant]
     Active Substance: DEXTROSE
     Indication: COMA
     Dosage: 1000 ML, QD
     Route: 042
     Dates: start: 20100714, end: 20100718

REACTIONS (4)
  - Schizophrenia [Recovered/Resolved]
  - Suicide attempt [Recovered/Resolved]
  - Coma [Unknown]
  - Acute respiratory failure [Unknown]

NARRATIVE: CASE EVENT DATE: 201007
